FAERS Safety Report 6327075-7 (Version None)
Quarter: 2009Q3

REPORT INFORMATION
  Report Type: 
  Country: None (occurrence: None)
  Receive Date: 20090825
  Receipt Date: 20090814
  Transmission Date: 20100115
  Serious: Yes (Hospitalization)
  Sender: FDA-Public Use
  Company Number: DE-WYE-H10625909

PATIENT
  Sex: Female

DRUGS (3)
  1. PANTOZOL [Suspect]
     Dosage: UNKNOWN
     Route: 048
  2. CLARITHROMYCIN [Suspect]
     Dosage: UNKNOWN
     Route: 048
  3. AMOXICILLIN TRIHYDRATE [Suspect]
     Dosage: UNKNOWN
     Route: 048

REACTIONS (4)
  - PARAESTHESIA ORAL [None]
  - RASH GENERALISED [None]
  - RASH PUSTULAR [None]
  - SWOLLEN TONGUE [None]
